FAERS Safety Report 7867696-3 (Version None)
Quarter: 2011Q4

REPORT INFORMATION
  Report Type: 
  Country: None (occurrence: None)
  Receive Date: 20111028
  Receipt Date: 20111025
  Transmission Date: 20120403
  Serious: Yes (Hospitalization, Other)
  Sender: FDA-Public Use
  Company Number: US-PFIZER INC-2011239405

PATIENT
  Sex: Female
  Weight: 108 kg

DRUGS (4)
  1. NEXIUM [Concomitant]
     Dosage: UNK
  2. CELEBREX [Concomitant]
     Indication: ARTHRITIS
     Dosage: UNK
  3. ACETYLSALICYLIC ACID [Concomitant]
     Dosage: UNK
  4. LYRICA [Suspect]
     Indication: FIBROMYALGIA
     Dosage: UNK
     Route: 048

REACTIONS (3)
  - WITHDRAWAL SYNDROME [None]
  - HYPERHIDROSIS [None]
  - FEELING COLD [None]
